FAERS Safety Report 21793623 (Version 1)
Quarter: 2022Q4

REPORT INFORMATION
  Report Type: Spontaneous
  Country: NL (occurrence: NL)
  Receive Date: 20221229
  Receipt Date: 20221229
  Transmission Date: 20230113
  Serious: Yes (Other)
  Sender: FDA-Public Use
  Company Number: NL-Accord-293166

PATIENT
  Age: 13 Year

DRUGS (5)
  1. ETOPOSIDE [Suspect]
     Active Substance: ETOPOSIDE
     Indication: Acute lymphocytic leukaemia
  2. CYTARABINE [Suspect]
     Active Substance: CYTARABINE
     Indication: Acute lymphocytic leukaemia
  3. MITOXANTRONE [Suspect]
     Active Substance: MITOXANTRONE HYDROCHLORIDE
     Indication: Acute lymphocytic leukaemia
  4. CYTARABINE [Suspect]
     Active Substance: CYTARABINE
     Indication: Acute lymphocytic leukaemia
     Dosage: COMPLETE TREATMENT TERMINATION HAS BEEN DONE AFTER TWO COURSES.
  5. ETOPOSIDE [Suspect]
     Active Substance: ETOPOSIDE
     Indication: Acute lymphocytic leukaemia
     Dosage: COMPLETE TREATMENT TERMINATION HAS BEEN DONE AFTER TWO COURSES.

REACTIONS (5)
  - Bronchopulmonary aspergillosis [Unknown]
  - Pyrexia [Unknown]
  - Aplasia [Unknown]
  - Ejection fraction decreased [Unknown]
  - Platelet count decreased [Unknown]
